FAERS Safety Report 20218089 (Version 1)
Quarter: 2021Q4

REPORT INFORMATION
  Report Type: Spontaneous
  Country: IT (occurrence: IT)
  Receive Date: 20211222
  Receipt Date: 20211222
  Transmission Date: 20220304
  Serious: Yes (Hospitalization)
  Sender: FDA-Public Use
  Company Number: IT-NORTHSTAR HEALTHCARE HOLDINGS-IT-2021NSR000177

PATIENT
  Age: 87 Year
  Sex: Male

DRUGS (1)
  1. ALLOPURINOL [Suspect]
     Active Substance: ALLOPURINOL
     Indication: Hyperuricaemia
     Dosage: 300 MG/DIE
     Route: 065

REACTIONS (3)
  - Acute hepatic failure [Recovered/Resolved]
  - Renal impairment [Recovered/Resolved]
  - Hypersensitivity [Recovered/Resolved]
